FAERS Safety Report 5062499-X (Version None)
Quarter: 2006Q3

REPORT INFORMATION
  Report Type: 
  Country: None (occurrence: None)
  Receive Date: 20060721
  Receipt Date: 20060712
  Transmission Date: 20061208
  Serious: Yes (Hospitalization)
  Sender: FDA-Public Use
  Company Number: 2006-07-0511

PATIENT
  Age: 47 Year
  Sex: Female

DRUGS (7)
  1. CELESTONE [Suspect]
     Indication: DERMATOMYOSITIS
     Dosage: 3 MG QD ORAL
     Route: 048
     Dates: start: 20020701, end: 20030525
  2. PREDONINE [Suspect]
     Indication: DERMATOMYOSITIS
     Dosage: 30 MG QD; 25 MG QD;  20 MG QD
     Dates: start: 20030526, end: 20030724
  3. PREDONINE [Suspect]
     Indication: INTERSTITIAL LUNG DISEASE
     Dosage: 30 MG QD; 25 MG QD;  20 MG QD
     Dates: start: 20030526, end: 20030724
  4. PREDONINE [Suspect]
     Indication: DERMATOMYOSITIS
     Dosage: 30 MG QD; 25 MG QD;  20 MG QD
     Dates: start: 20030724, end: 20030803
  5. PREDONINE [Suspect]
     Indication: INTERSTITIAL LUNG DISEASE
     Dosage: 30 MG QD; 25 MG QD;  20 MG QD
     Dates: start: 20030724, end: 20030803
  6. PREDONINE [Suspect]
     Indication: DERMATOMYOSITIS
     Dosage: 30 MG QD; 25 MG QD;  20 MG QD
     Dates: start: 20030803, end: 20030902
  7. PREDONINE [Suspect]
     Indication: INTERSTITIAL LUNG DISEASE
     Dosage: 30 MG QD; 25 MG QD;  20 MG QD
     Dates: start: 20030803, end: 20030902

REACTIONS (16)
  - ACTIVITIES OF DAILY LIVING IMPAIRED [None]
  - ACUTE RESPIRATORY DISTRESS SYNDROME [None]
  - ALDOLASE INCREASED [None]
  - ANTINUCLEAR ANTIBODY POSITIVE [None]
  - CELL MARKER INCREASED [None]
  - CONDITION AGGRAVATED [None]
  - CYTOMEGALOVIRUS CHORIORETINITIS [None]
  - DEPRESSION [None]
  - DERMATOMYOSITIS [None]
  - DIABETES MELLITUS [None]
  - FATIGUE [None]
  - INTERSTITIAL LUNG DISEASE [None]
  - MENTAL DISORDER [None]
  - PSYCHOTIC DISORDER [None]
  - RASH [None]
  - RETINAL EXUDATES [None]
